FAERS Safety Report 8190577-5 (Version None)
Quarter: 2012Q1

REPORT INFORMATION
  Report Type: 
  Country: None (occurrence: None)
  Receive Date: 20120307
  Receipt Date: 20120301
  Transmission Date: 20120608
  Serious: Yes (Other)
  Sender: FDA-Public Use
  Company Number: US-BAYER-2012-021017

PATIENT

DRUGS (1)
  1. ALEVE (CAPLET) [Suspect]
     Indication: ARTHRALGIA
     Dosage: BOTTLE COUNT: NOT REPORTED
     Route: 048
     Dates: start: 20120229

REACTIONS (2)
  - ARTHRALGIA [None]
  - ASTHENIA [None]
